FAERS Safety Report 19021107 (Version 2)
Quarter: 2021Q3

REPORT INFORMATION
  Report Type: Spontaneous
  Country: IT (occurrence: IT)
  Receive Date: 20210317
  Receipt Date: 20210722
  Transmission Date: 20211014
  Serious: Yes (Other)
  Sender: FDA-Public Use
  Company Number: IT-ALLERGAN-2111204US

PATIENT
  Sex: Male

DRUGS (5)
  1. CIPROFLOXACIN. [Interacting]
     Active Substance: CIPROFLOXACIN
     Indication: EPIDIDYMITIS
  2. CARIPRAZINE HCL ? BP [Suspect]
     Active Substance: CARIPRAZINE HYDROCHLORIDE
     Indication: DEPRESSION
     Dosage: 3 MG, QD
     Route: 048
  3. LEVOFLOXACIN. [Interacting]
     Active Substance: LEVOFLOXACIN
     Indication: EPIDIDYMITIS
     Dosage: UNK
  4. IBUPROFEN. [Interacting]
     Active Substance: IBUPROFEN
     Indication: EPIDIDYMITIS
     Dosage: UNK
  5. CARIPRAZINE HCL ? BP [Interacting]
     Active Substance: CARIPRAZINE HYDROCHLORIDE
     Indication: OFF LABEL USE

REACTIONS (4)
  - Off label use [Unknown]
  - Drug ineffective [Unknown]
  - Epididymitis [Unknown]
  - Drug interaction [Unknown]
